FAERS Safety Report 12968568 (Version 5)
Quarter: 2020Q4

REPORT INFORMATION
  Report Type: Other
  Country: CA (occurrence: CA)
  Receive Date: 20161123
  Receipt Date: 20201006
  Transmission Date: 20210113
  Serious: Yes (Other)
  Sender: FDA-Public Use
  Company Number: CA-APOTEX-2016AP014664

PATIENT
  Sex: Female

DRUGS (24)
  1. SERTRALINE [Suspect]
     Active Substance: SERTRALINE HYDROCHLORIDE
     Indication: PANIC ATTACK
     Route: 048
  2. PAROXETINE. [Suspect]
     Active Substance: PAROXETINE
     Indication: ANXIETY
  3. PIROXICAM. [Suspect]
     Active Substance: PIROXICAM
     Indication: PANIC ATTACK
  4. SERTRALINE [Suspect]
     Active Substance: SERTRALINE HYDROCHLORIDE
     Indication: ANXIETY
  5. BUSPIRONE [Suspect]
     Active Substance: BUSPIRONE HYDROCHLORIDE
     Indication: PANIC ATTACK
     Route: 048
  6. BUSPIRONE [Suspect]
     Active Substance: BUSPIRONE HYDROCHLORIDE
     Indication: DEPRESSION
  7. BUSPIRONE [Suspect]
     Active Substance: BUSPIRONE HYDROCHLORIDE
     Indication: ANXIETY
  8. PAROXETINE. [Suspect]
     Active Substance: PAROXETINE
     Indication: DEPRESSION
  9. SERTRALINE [Suspect]
     Active Substance: SERTRALINE HYDROCHLORIDE
     Indication: DEPRESSION
  10. CITALOPRAM [Suspect]
     Active Substance: CITALOPRAM HYDROBROMIDE
     Indication: ANXIETY
  11. XANAX [Suspect]
     Active Substance: ALPRAZOLAM
     Indication: ANXIETY
  12. APO-CLONAZEPAM [Suspect]
     Active Substance: CLONAZEPAM
     Indication: ANXIETY
  13. CITALOPRAM [Suspect]
     Active Substance: CITALOPRAM HYDROBROMIDE
     Indication: DEPRESSION
  14. XANAX [Suspect]
     Active Substance: ALPRAZOLAM
     Indication: PANIC ATTACK
     Route: 048
  15. CITALOPRAM [Suspect]
     Active Substance: CITALOPRAM HYDROBROMIDE
     Indication: PANIC ATTACK
     Route: 048
  16. APO-CLONAZEPAM [Suspect]
     Active Substance: CLONAZEPAM
     Indication: DEPRESSION
  17. PROZAC [Suspect]
     Active Substance: FLUOXETINE HYDROCHLORIDE
     Indication: PANIC ATTACK
     Route: 065
  18. PROZAC [Suspect]
     Active Substance: FLUOXETINE HYDROCHLORIDE
     Indication: ANXIETY
  19. APO-CLONAZEPAM [Suspect]
     Active Substance: CLONAZEPAM
     Indication: PANIC ATTACK
     Route: 048
  20. PROZAC [Suspect]
     Active Substance: FLUOXETINE HYDROCHLORIDE
     Indication: DEPRESSION
  21. PAROXETINE. [Suspect]
     Active Substance: PAROXETINE
     Indication: PANIC ATTACK
     Route: 048
  22. PIROXICAM. [Suspect]
     Active Substance: PIROXICAM
     Indication: DEPRESSION
  23. PIROXICAM. [Suspect]
     Active Substance: PIROXICAM
     Indication: ANXIETY
  24. XANAX [Suspect]
     Active Substance: ALPRAZOLAM
     Indication: DEPRESSION

REACTIONS (5)
  - Drug abuse [Unknown]
  - Drug ineffective [Unknown]
  - Drug use disorder [Unknown]
  - Drug dependence [Unknown]
  - Drug withdrawal syndrome [Unknown]
